FAERS Safety Report 15483574 (Version 1)
Quarter: 2018Q4

REPORT INFORMATION
  Report Type: Spontaneous
  Country: US (occurrence: US)
  Receive Date: 20181010
  Receipt Date: 20181010
  Transmission Date: 20190205
  Serious: No
  Sender: FDA-Public Use
  Company Number: US-PFIZER INC-2016301795

PATIENT
  Age: 65 Year
  Sex: Male

DRUGS (2)
  1. GABAPENTIN. [Suspect]
     Active Substance: GABAPENTIN
     Indication: DIABETIC NEUROPATHY
     Dosage: 1200 MG, 3X/DAY (600 MG, TWO TABLETS)
     Route: 048
     Dates: start: 20150623
  2. GABAPENTIN. [Suspect]
     Active Substance: GABAPENTIN
     Dosage: 600 MG, 2X/DAY
     Route: 048

REACTIONS (5)
  - Pain in extremity [Unknown]
  - Product use in unapproved indication [Unknown]
  - Gait disturbance [Unknown]
  - Fatigue [Unknown]
  - Hypertension [Unknown]

NARRATIVE: CASE EVENT DATE: 20150623
